FAERS Safety Report 9137286 (Version 1)
Quarter: 2013Q1

REPORT INFORMATION
  Report Type: Report from Study
  Country: US (occurrence: US)
  Receive Date: 20130304
  Receipt Date: 20130304
  Transmission Date: 20140127
  Serious: No
  Sender: FDA-Public Use
  Company Number: US-ABBOTT-12P-163-0931302-00

PATIENT
  Sex: Male
  Weight: 136.2 kg

DRUGS (3)
  1. ANDROGEL 1% [Suspect]
     Indication: BLOOD TESTOSTERONE DECREASED
     Dosage: PACKETS
     Dates: start: 2005, end: 2006
  2. UNKNOWN MEDICATION [Concomitant]
     Indication: DIABETES MELLITUS
  3. UNKNOWN MEDICATION [Concomitant]
     Indication: BLOOD CHOLESTEROL

REACTIONS (2)
  - Blood testosterone decreased [Unknown]
  - Drug effect decreased [Unknown]
